FAERS Safety Report 6362146-0 (Version None)
Quarter: 2009Q3

REPORT INFORMATION
  Report Type: 
  Country: None (occurrence: None)
  Receive Date: 20090918
  Receipt Date: 20090909
  Transmission Date: 20100115
  Serious: Yes (Death, Life-Threatening, Hospitalization)
  Sender: FDA-Public Use
  Company Number: DE-ABBOTT-09P-062-0589433-00

PATIENT
  Sex: Male
  Weight: 96.4 kg

DRUGS (14)
  1. HUMIRA [Suspect]
     Indication: RHEUMATOID ARTHRITIS
     Route: 058
     Dates: start: 20080201, end: 20090501
  2. CYCLOPHOSPHAMIDE [Concomitant]
     Indication: NON-HODGKIN'S LYMPHOMA
  3. METHOTREXATE SODIUM [Concomitant]
     Indication: RHEUMATOID ARTHRITIS
     Route: 058
     Dates: start: 20020101, end: 20090501
  4. PREDNISOLONE [Concomitant]
     Indication: RHEUMATOID ARTHRITIS
     Route: 048
  5. DECORTIN [Concomitant]
     Indication: DRUG USE FOR UNKNOWN INDICATION
  6. METEX [Concomitant]
     Indication: DRUG USE FOR UNKNOWN INDICATION
  7. FOLIC ACID [Concomitant]
     Indication: DRUG USE FOR UNKNOWN INDICATION
     Dosage: ON FOLLOWING DAY
  8. VOLTAREN [Concomitant]
     Indication: DRUG USE FOR UNKNOWN INDICATION
     Dosage: DAILY
  9. ZOCOR [Concomitant]
     Indication: DRUG USE FOR UNKNOWN INDICATION
  10. OMEPRAZOL [Concomitant]
     Indication: DRUG USE FOR UNKNOWN INDICATION
  11. AMLODIPINE [Concomitant]
     Indication: DRUG USE FOR UNKNOWN INDICATION
  12. DIOVAN [Concomitant]
     Indication: DRUG USE FOR UNKNOWN INDICATION
  13. ZOPLICON [Concomitant]
     Indication: DRUG USE FOR UNKNOWN INDICATION
  14. FOSAVANCE [Concomitant]
     Indication: DRUG USE FOR UNKNOWN INDICATION

REACTIONS (23)
  - APLASIA [None]
  - ASPIRATION [None]
  - CARDIOPULMONARY FAILURE [None]
  - CHEST PAIN [None]
  - DIPLOPIA [None]
  - DYSPNOEA [None]
  - ENDOTRACHEAL INTUBATION [None]
  - GENERAL SYMPTOM [None]
  - GINGIVAL BLEEDING [None]
  - HAEMATOCHEZIA [None]
  - HERPES SIMPLEX [None]
  - HIGH GRADE B-CELL LYMPHOMA BURKITT-LIKE LYMPHOMA [None]
  - HYPOTONIA [None]
  - INFLAMMATION [None]
  - MUCOSAL INFLAMMATION [None]
  - MYALGIA [None]
  - PARAESTHESIA [None]
  - RESPIRATORY TRACT INFECTION [None]
  - SEPSIS [None]
  - SLEEP DISORDER [None]
  - TACHYPNOEA [None]
  - TOOTH ABSCESS [None]
  - TOOTHACHE [None]
